FAERS Safety Report 20160488 (Version 2)
Quarter: 2021Q4

REPORT INFORMATION
  Report Type: Report from Study
  Country: PR (occurrence: PR)
  Receive Date: 20211208
  Receipt Date: 20211209
  Transmission Date: 20220303
  Serious: Yes (Other)
  Sender: FDA-Public Use
  Company Number: PR-BIOGEN-2021BI01074942

PATIENT
  Age: 41 Year
  Sex: Female
  Weight: 53.572 kg

DRUGS (2)
  1. VUMERITY [Suspect]
     Active Substance: DIROXIMEL FUMARATE
     Indication: Multiple sclerosis
     Route: 048
     Dates: start: 20210630
  2. ALBUTEROL [Concomitant]
     Active Substance: ALBUTEROL
     Indication: Respiratory therapy
     Route: 065

REACTIONS (11)
  - Deafness [Unknown]
  - Multiple sclerosis relapse [Unknown]
  - Blood urea decreased [Not Recovered/Not Resolved]
  - Memory impairment [Unknown]
  - Hypoaesthesia [Unknown]
  - Vision blurred [Unknown]
  - Blood creatinine decreased [Not Recovered/Not Resolved]
  - Immunoglobulins decreased [Not Recovered/Not Resolved]
  - Fatigue [Not Recovered/Not Resolved]
  - Headache [Recovered/Resolved with Sequelae]
  - Nausea [Unknown]

NARRATIVE: CASE EVENT DATE: 20211001
